FAERS Safety Report 19521206 (Version 2)
Quarter: 2022Q2

REPORT INFORMATION
  Report Type: Spontaneous
  Country: US (occurrence: US)
  Receive Date: 20210712
  Receipt Date: 20220411
  Transmission Date: 20220721
  Serious: No
  Sender: FDA-Public Use
  Company Number: US-NOVARTISTESTPH-NVSC2021US150123

PATIENT
  Sex: Male

DRUGS (2)
  1. PROMACTA [Suspect]
     Active Substance: ELTROMBOPAG OLAMINE
     Indication: Immune thrombocytopenia
     Dosage: 50 MG, QD (STRENGTH 50 MG)
     Route: 048
     Dates: start: 20161210
  2. PROMACTA [Suspect]
     Active Substance: ELTROMBOPAG OLAMINE
     Dosage: 25 MG, QD (STRENGTH 25 MG)
     Route: 048
     Dates: start: 202108

REACTIONS (3)
  - Taste disorder [Unknown]
  - Parosmia [Unknown]
  - Platelet count increased [Unknown]
